FAERS Safety Report 8890148 (Version 2)
Quarter: 2012Q4

REPORT INFORMATION
  Report Type: 
  Country: GB (occurrence: GB)
  Receive Date: 20121107
  Receipt Date: 20121227
  Transmission Date: 20130627
  Serious: Yes (Hospitalization, Other)
  Sender: FDA-Public Use
  Company Number: GB-TEVA-367097ISR

PATIENT
  Age: 48 Year
  Sex: Male

DRUGS (8)
  1. AMLODIPINE [Suspect]
     Indication: HYPERTENSION
     Dosage: 10 Milligram Daily;
     Route: 048
     Dates: start: 200901
  2. TEGRETOL RETARD [Interacting]
     Indication: EPILEPSY
     Route: 048
     Dates: start: 200606
  3. ANTACID [Concomitant]
  4. LANSOPRAZOLE [Concomitant]
     Indication: DYSPEPSIA
     Dosage: 30 Milligram Daily;
     Route: 048
     Dates: start: 20030203
  5. ASPIRIN [Concomitant]
     Indication: CEREBROVASCULAR ACCIDENT
     Dosage: 75 Milligram Daily;
     Route: 048
     Dates: start: 200901
  6. ATORVASTATIN [Concomitant]
     Indication: CEREBROVASCULAR ACCIDENT
     Dosage: 40 Milligram Daily;
     Route: 048
     Dates: start: 200901
  7. KEPPRA [Concomitant]
     Indication: EPILEPSY
     Dosage: 4 Gram Daily;
     Route: 048
     Dates: start: 20040908
  8. SIMVASTATIN [Concomitant]

REACTIONS (6)
  - Cerebrovascular accident [Recovering/Resolving]
  - Hypertension [Not Recovered/Not Resolved]
  - Drug interaction [Unknown]
  - Basal ganglia infarction [Unknown]
  - Hemiparesis [Unknown]
  - Fatigue [Recovering/Resolving]
